FAERS Safety Report 4958091-5 (Version None)
Quarter: 2006Q1

REPORT INFORMATION
  Report Type: 
  Country: None (occurrence: None)
  Receive Date: 20060330
  Receipt Date: 20060327
  Transmission Date: 20060701
  Serious: Yes (Life-Threatening, Hospitalization)
  Sender: FDA-Public Use
  Company Number: GB-MERCK-0603GBR00135

PATIENT
  Age: 76 Year
  Sex: Male

DRUGS (5)
  1. ZOCOR [Suspect]
     Indication: HYPERCHOLESTEROLAEMIA
     Route: 048
     Dates: start: 20000101, end: 20060220
  2. FLOXACILLIN [Concomitant]
     Indication: SEPSIS
     Route: 048
     Dates: start: 20051201, end: 20060220
  3. LEVOTHYROXINE SODIUM [Concomitant]
     Indication: HYPOTHYROIDISM
     Route: 048
     Dates: start: 20000101
  4. DOXAZOSIN MESYLATE [Concomitant]
     Indication: HYPERTENSION
     Route: 048
     Dates: start: 19990101
  5. AMIODARONE [Concomitant]
     Indication: PAROXYSMAL ARRHYTHMIA
     Route: 048
     Dates: start: 20000101

REACTIONS (1)
  - RENAL FAILURE ACUTE [None]
